FAERS Safety Report 8071424-9 (Version None)
Quarter: 2012Q1

REPORT INFORMATION
  Report Type: 
  Country: None (occurrence: None)
  Receive Date: 20120125
  Receipt Date: 20120116
  Transmission Date: 20120608
  Serious: Yes (Other)
  Sender: FDA-Public Use
  Company Number: US-ELI_LILLY_AND_COMPANY-US201201005633

PATIENT
  Sex: Male

DRUGS (15)
  1. APIDRA [Concomitant]
  2. PREDNISONE TAB [Concomitant]
  3. OTH.DRUGS FOR OBSTRUC.AIRWAY DISEASES,INHALAN [Concomitant]
  4. HUMULIN N [Suspect]
     Indication: TYPE 2 DIABETES MELLITUS
     Dosage: 40 U, QD
     Route: 065
     Dates: start: 20110901
  5. LANTUS [Concomitant]
  6. HUMULIN N [Suspect]
     Dosage: 40 U, QD
     Route: 065
     Dates: start: 20080101
  7. HUMULIN N [Suspect]
     Dosage: 40 U, QD
     Route: 065
     Dates: start: 20080101
  8. HUMULIN 70/30 [Suspect]
     Dosage: 25 U, BID
     Route: 065
     Dates: start: 20110201, end: 20110701
  9. BACTRIM [Concomitant]
  10. HUMULIN R [Suspect]
     Indication: TYPE 2 DIABETES MELLITUS
     Dosage: UNK, UNKNOWN
     Route: 065
     Dates: end: 20110201
  11. HUMULIN 70/30 [Suspect]
     Dosage: 25 U, BID
     Route: 065
     Dates: start: 20110201, end: 20110701
  12. CORTICOSTEROIDS [Concomitant]
  13. HUMULIN N [Suspect]
     Dosage: 40 U, QD
     Route: 065
     Dates: start: 20110901
  14. HUMULIN 70/30 [Suspect]
     Indication: TYPE 2 DIABETES MELLITUS
     Dosage: 25 U, BID
     Dates: end: 20110901
  15. SULFONAMIDES [Concomitant]

REACTIONS (10)
  - DYSPNOEA [None]
  - DRUG INEFFECTIVE [None]
  - PROSTATIC DISORDER [None]
  - HYPERSENSITIVITY [None]
  - BLOOD GLUCOSE INCREASED [None]
  - EXPIRED DRUG ADMINISTERED [None]
  - LIP SWELLING [None]
  - DISCOMFORT [None]
  - MALAISE [None]
  - INFLUENZA LIKE ILLNESS [None]
